FAERS Safety Report 9735554 (Version 1)
Quarter: 2013Q4

REPORT INFORMATION
  Report Type: Spontaneous
  Country: US (occurrence: US)
  Receive Date: 20131206
  Receipt Date: 20131206
  Transmission Date: 20140711
  Serious: No
  Sender: FDA-Public Use
  Company Number: US-GILEAD-2009-0023681

PATIENT
  Sex: Female
  Weight: 75.75 kg

DRUGS (14)
  1. LETAIRIS [Suspect]
     Indication: PULMONARY ARTERIAL HYPERTENSION
     Route: 048
     Dates: start: 20090626
  2. METOPROLOL [Concomitant]
  3. NIFEDICAL XL [Concomitant]
  4. ASPIRIN [Concomitant]
  5. PLAVIX [Concomitant]
  6. ZOCOR [Concomitant]
  7. LEVOTHYROXINE [Concomitant]
  8. METHOTREXATE [Concomitant]
  9. CELLCEPT [Concomitant]
  10. PREDNISONE [Concomitant]
  11. LEXAPRO [Concomitant]
  12. CLONAZEPAM [Concomitant]
  13. CALCIUM+D [Concomitant]
  14. FOLIC ACID [Concomitant]

REACTIONS (1)
  - Nasal congestion [Unknown]
